FAERS Safety Report 19075475 (Version 1)
Quarter: 2021Q1

REPORT INFORMATION
  Report Type: Spontaneous
  Country: CN (occurrence: CN)
  Receive Date: 20210331
  Receipt Date: 20210331
  Transmission Date: 20210420
  Serious: Yes (Other)
  Sender: FDA-Public Use
  Company Number: CN-ACCORD-220833

PATIENT
  Age: 44 Year
  Sex: Female

DRUGS (3)
  1. APATINIB [Suspect]
     Active Substance: APATINIB
     Indication: ANTIANGIOGENIC THERAPY
  2. CAPECITABINE. [Suspect]
     Active Substance: CAPECITABINE
     Indication: THYMIC CANCER METASTATIC
     Dosage: DAYS 1?14
  3. OXALIPLATIN. [Suspect]
     Active Substance: OXALIPLATIN
     Indication: THYMIC CANCER METASTATIC
     Dosage: DAY 1

REACTIONS (2)
  - Oesophagitis [Unknown]
  - Myelosuppression [Unknown]
